FAERS Safety Report 21543519 (Version 4)
Quarter: 2023Q1

REPORT INFORMATION
  Report Type: Spontaneous
  Country: JP (occurrence: JP)
  Receive Date: 20221102
  Receipt Date: 20230307
  Transmission Date: 20230418
  Serious: Yes (Hospitalization, Other)
  Sender: FDA-Public Use
  Company Number: JP-OTSUKA-2022_050166

PATIENT
  Sex: Male

DRUGS (11)
  1. REXULTI [Suspect]
     Active Substance: BREXPIPRAZOLE
     Indication: Schizophreniform disorder
     Dosage: 2 MG/DAY
     Route: 048
     Dates: start: 20221015, end: 20221020
  2. REXULTI [Suspect]
     Active Substance: BREXPIPRAZOLE
     Indication: Schizophreniform disorder
     Dosage: 1 MG/DAY
     Route: 048
     Dates: start: 20221011, end: 20221014
  3. RISPERIDONE [Suspect]
     Active Substance: RISPERIDONE
     Indication: Product used for unknown indication
     Dosage: 2 MG/DAY
     Route: 048
     Dates: start: 20221027, end: 20221111
  4. RISPERIDONE [Suspect]
     Active Substance: RISPERIDONE
     Dosage: 1 ML/DAY, USED AS-NEEDED BASIS ONLY ONCE
     Route: 048
     Dates: start: 20221010, end: 20221010
  5. LATUDA [Suspect]
     Active Substance: LURASIDONE HYDROCHLORIDE
     Indication: Product used for unknown indication
     Dosage: 20 MG/DAY
     Route: 048
     Dates: start: 20221111, end: 20221113
  6. LATUDA [Suspect]
     Active Substance: LURASIDONE HYDROCHLORIDE
     Dosage: 40 MG/DAY
     Route: 048
     Dates: start: 20221114, end: 20221116
  7. ADENINE [Suspect]
     Active Substance: ADENINE
     Indication: Product used for unknown indication
     Dosage: UNK
     Route: 065
     Dates: start: 2022
  8. OLANZAPINE [Suspect]
     Active Substance: OLANZAPINE
     Indication: Product used for unknown indication
     Dosage: 10 MG/DAY
     Route: 048
     Dates: start: 20221117, end: 20221123
  9. OLANZAPINE [Suspect]
     Active Substance: OLANZAPINE
     Dosage: 15 MG/DAY
     Route: 048
     Dates: start: 20221124
  10. DAYVIGO [Concomitant]
     Active Substance: LEMBOREXANT
     Indication: Product used for unknown indication
     Dosage: 5 MG/DAY
     Route: 048
     Dates: start: 20221011, end: 20221016
  11. DAYVIGO [Concomitant]
     Active Substance: LEMBOREXANT
     Dosage: 10 MG/DAY
     Route: 048
     Dates: start: 20221017, end: 20221107

REACTIONS (7)
  - Rhabdomyolysis [Recovered/Resolved]
  - Blood creatine phosphokinase increased [Recovered/Resolved]
  - Neutropenia [Unknown]
  - Eosinophil percentage increased [Unknown]
  - Psychiatric symptom [Unknown]
  - Hepatic function abnormal [Unknown]
  - Product use in unapproved indication [Unknown]

NARRATIVE: CASE EVENT DATE: 20220101
